FAERS Safety Report 4362478-1 (Version None)
Quarter: 2004Q2

REPORT INFORMATION
  Report Type: 
  Country: None (occurrence: None)
  Receive Date: 20040521
  Receipt Date: 20020418
  Transmission Date: 20050107
  Serious: Yes (Hospitalization, Other)
  Sender: FDA-Public Use
  Company Number: US-BRISTOL-MYERS SQUIBB COMPANY-11842507

PATIENT
  Age: 62 Year
  Sex: Female

DRUGS (9)
  1. STADOL [Suspect]
     Indication: MIGRAINE
     Route: 045
     Dates: start: 19950309, end: 19980401
  2. OXYCODONE HCL + ACETAMINOPHEN [Concomitant]
  3. AMITRIPTYLINE HCL [Concomitant]
  4. HYDROXYZINE [Concomitant]
  5. PHENERGAN [Concomitant]
  6. PROPOXYPHENE NAPSYLATE [Concomitant]
  7. DIAZEPAM [Concomitant]
  8. LORCET-HD [Concomitant]
  9. CYCLOBENZAPRINE [Concomitant]

REACTIONS (3)
  - DEPENDENCE [None]
  - MULTIPLE DRUG OVERDOSE [None]
  - SUICIDE ATTEMPT [None]
